FAERS Safety Report 19887259 (Version 1)
Quarter: 2021Q3

REPORT INFORMATION
  Report Type: Spontaneous
  Country: US (occurrence: US)
  Receive Date: 20210927
  Receipt Date: 20210927
  Transmission Date: 20211014
  Serious: Yes (Hospitalization)
  Sender: FDA-Public Use
  Company Number: US-KVK-TECH, INC-20210800095

PATIENT
  Age: 51 Year
  Sex: Female
  Weight: 60.77 kg

DRUGS (1)
  1. PROMETHAZINE HYDROCHLORIDE TABLETS, USP [Suspect]
     Active Substance: PROMETHAZINE HYDROCHLORIDE
     Indication: MIGRAINE
     Dosage: UNK, QID
     Dates: start: 20210730, end: 20210804

REACTIONS (13)
  - Gastrointestinal inflammation [Recovered/Resolved]
  - Skin odour abnormal [Unknown]
  - Alopecia [Recovered/Resolved]
  - Urine odour abnormal [Unknown]
  - Gait inability [Recovered/Resolved]
  - Vomiting [Recovered/Resolved]
  - Abnormal faeces [Recovered/Resolved]
  - Product odour abnormal [Recovered/Resolved]
  - Nausea [Recovered/Resolved]
  - Weight decreased [Recovered/Resolved]
  - Illness [Recovered/Resolved]
  - Diarrhoea [Recovered/Resolved]
  - Feeding disorder [Recovered/Resolved]

NARRATIVE: CASE EVENT DATE: 2021
